FAERS Safety Report 8908698 (Version 2)
Quarter: 2012Q4

REPORT INFORMATION
  Report Type: 
  Country: US (occurrence: US)
  Receive Date: 20121114
  Receipt Date: 20121226
  Transmission Date: 20130627
  Serious: No
  Sender: FDA-Public Use
  Company Number: US-PFIZER INC-2012282731

PATIENT
  Age: 46 Year
  Sex: Female

DRUGS (7)
  1. VOLTAREN [Suspect]
     Indication: NECK PAIN
     Dosage: 75 mg, 2x/day
     Route: 048
     Dates: start: 20100418, end: 20100601
  2. LANTUS [Concomitant]
     Indication: DIABETES
     Dosage: 60 IU, UNK
  3. METFORMIN [Concomitant]
     Indication: DIABETES
     Dosage: 500 mg, 2x/day
  4. CYCLOBENZAPRINE [Concomitant]
     Indication: CERVICAL DISC DEGENERATION
     Dosage: 10 mg, 2x/day
  5. TRICOR [Concomitant]
     Indication: HYPERLIPIDEMIA
     Dosage: 145 mg, 1x/day
  6. DIOVAN HCT [Concomitant]
     Indication: HYPERTENSION
     Dosage: 320/25 mg, 1x/day
  7. DIOVAN HCT [Concomitant]
     Indication: DIABETES MELLITUS

REACTIONS (2)
  - Drug hypersensitivity [Unknown]
  - Swelling [Recovered/Resolved]
